FAERS Safety Report 5080816-1 (Version None)
Quarter: 2006Q3

REPORT INFORMATION
  Report Type: 
  Country: None (occurrence: None)
  Receive Date: 20060811
  Receipt Date: 20060728
  Transmission Date: 20061208
  Serious: Yes (Hospitalization, Disabling, Other)
  Sender: FDA-Public Use
  Company Number: SPVI-2006-00294

PATIENT
  Age: 67 Year
  Sex: Female
  Weight: 75 kg

DRUGS (11)
  1. AGRYLIN [Suspect]
     Indication: ESSENTIAL THROMBOCYTHAEMIA
     Dosage: SEE IMAGE
     Route: 048
     Dates: start: 19991201, end: 20040701
  2. AGRYLIN [Suspect]
     Indication: ESSENTIAL THROMBOCYTHAEMIA
     Dosage: SEE IMAGE
     Route: 048
     Dates: start: 20040702, end: 20040721
  3. NEXIUM /01479302/ (ESOMEPRAZOLE MAGNESIUM) [Concomitant]
  4. IRON (IRON) [Concomitant]
  5. ASPIRIN [Concomitant]
  6. SYNTHROID [Concomitant]
  7. VITAMIN C + E (ASCORBIC ACID, TOCOPHEROL) [Concomitant]
  8. PREDNISONE TAB [Concomitant]
  9. LORAZEPAM [Concomitant]
  10. XALATAN /01297301/ (LATANOPROST) [Concomitant]
  11. TRUSOPT [Concomitant]

REACTIONS (6)
  - ANEURYSM [None]
  - CEREBROVASCULAR ACCIDENT [None]
  - FATIGUE [None]
  - INTRACRANIAL ANEURYSM [None]
  - TRANSIENT ISCHAEMIC ATTACK [None]
  - VASCULITIS CEREBRAL [None]
